FAERS Safety Report 17097748 (Version 1)
Quarter: 2019Q4

REPORT INFORMATION
  Report Type: Spontaneous
  Country: US (occurrence: US)
  Receive Date: 20191105
  Receipt Date: 20191105
  Transmission Date: 20200122
  Serious: No
  Sender: FDA-Public Use
  Company Number: None

PATIENT
  Age: 44 Year
  Sex: Female

DRUGS (1)
  1. COSENTYX [Suspect]
     Active Substance: SECUKINUMAB
     Indication: ANKYLOSING SPONDYLITIS
     Dosage: INJECT 150MG (1 SYRINGE) SUBCUTANEOUSLY EVERY WEEK FOR 5 WEEKS AS DIRECTED
     Route: 058
     Dates: start: 201908

REACTIONS (6)
  - Depression [None]
  - Anxiety [None]
  - Arthralgia [None]
  - Insomnia [None]
  - Fatigue [None]
  - Hypoaesthesia [None]
